FAERS Safety Report 6089198-X (Version None)
Quarter: 2009Q1

REPORT INFORMATION
  Report Type: 
  Country: None (occurrence: None)
  Receive Date: 20090224
  Receipt Date: 20090209
  Transmission Date: 20090719
  Serious: Yes (Hospitalization, Disabling)
  Sender: FDA-Public Use
  Company Number: US-GENENTECH-277643

PATIENT
  Sex: Female

DRUGS (2)
  1. BEVACIZUMAB [Suspect]
     Indication: BREAST CANCER
     Dosage: 15 MG/KG, Q3W
     Route: 042
  2. ERLOTINIB [Suspect]
     Indication: BREAST CANCER
     Dosage: 150 MG, QD
     Route: 048

REACTIONS (1)
  - NEUROPATHY PERIPHERAL [None]
